FAERS Safety Report 23738210 (Version 2)
Quarter: 2024Q2

REPORT INFORMATION
  Report Type: Spontaneous
  Country: IT (occurrence: IT)
  Receive Date: 20240412
  Receipt Date: 20240504
  Transmission Date: 20240716
  Serious: Yes (Death, Other)
  Sender: FDA-Public Use
  Company Number: IT-GENMAB-2024-01188

PATIENT
  Age: 59 Year
  Sex: Male
  Weight: 75 kg

DRUGS (9)
  1. EPCORITAMAB [Suspect]
     Active Substance: EPCORITAMAB
     Indication: Diffuse large B-cell lymphoma
     Dosage: 48 MG (VIALS), ONCE A WEEK, EVERY 1 WEEKS
     Route: 058
     Dates: start: 20240312, end: 20240402
  2. MAGNESIUM PIDOLATE [Concomitant]
     Active Substance: MAGNESIUM PIDOLATE
     Indication: Product used for unknown indication
     Dosage: DOSE: 1 SACHET  FREQUENCY: FREQUENCY TEXT: DAILY
  3. ACYCLOVIR [Concomitant]
     Active Substance: ACYCLOVIR
     Indication: Product used for unknown indication
     Dosage: 400 MG 400 MG, FREQUENCY TEXT: 1 CP AT 08:00AM AND AT 08:00PM
  4. ATOVAQUONE [Concomitant]
     Active Substance: ATOVAQUONE
     Indication: Product used for unknown indication
     Dosage: 5 ML 5ML, FREQUENCY TEXT: 2TIMES/DAY
  5. FOLIC ACID [Concomitant]
     Active Substance: FOLIC ACID
     Indication: Product used for unknown indication
     Dosage: FREQUENCY: FREQUENCY TEXT: 1 CAPSULE DAILY
  6. ALLOPURINOL [Concomitant]
     Active Substance: ALLOPURINOL
     Indication: Product used for unknown indication
     Dosage: FREQUENCY: FREQUENCY TEXT: 1 CP AT 10:00AM
  7. PANTOPRAZOLE SODIUM [Concomitant]
     Active Substance: PANTOPRAZOLE SODIUM
     Indication: Product used for unknown indication
     Dosage: 40 MG 40 MG, 1CP IN THE MORNING, 1CP IN THE EVENING
  8. ENTECAVIR [Concomitant]
     Active Substance: ENTECAVIR
     Indication: Product used for unknown indication
     Dosage: FREQUENCY: FREQUENCY TEXT: 1 CP DAILY
  9. TAMSULOSIN HYDROCHLORIDE [Concomitant]
     Active Substance: TAMSULOSIN HYDROCHLORIDE
     Indication: Product used for unknown indication
     Dosage: 0.4 MG 0.4 MG, 1 CP IN THE EVENING

REACTIONS (3)
  - Septic shock [Fatal]
  - Pyrexia [Fatal]
  - Procalcitonin increased [Unknown]

NARRATIVE: CASE EVENT DATE: 20240405
